FAERS Safety Report 16395663 (Version 3)
Quarter: 2020Q1

REPORT INFORMATION
  Report Type: Report from Study
  Country: US (occurrence: US)
  Receive Date: 20190605
  Receipt Date: 20200324
  Transmission Date: 20200409
  Serious: Yes (Other)
  Sender: FDA-Public Use
  Company Number: US-BAUSCH-BL-2018-025472

PATIENT
  Age: 25 Year
  Sex: Male
  Weight: 68.55 kg

DRUGS (5)
  1. CUPRIMINE [Suspect]
     Active Substance: PENICILLAMINE
     Dosage: REDUCED DOSE
     Route: 048
     Dates: end: 201905
  2. CUPRIMINE [Suspect]
     Active Substance: PENICILLAMINE
     Dosage: TITRATED
     Route: 048
     Dates: start: 2017
  3. CALCIUM [Concomitant]
     Active Substance: CALCIUM
     Indication: PRODUCT USED FOR UNKNOWN INDICATION
     Dosage: RECOMMENDED BY DOCTOR
     Route: 048
  4. CUPRIMINE [Suspect]
     Active Substance: PENICILLAMINE
     Route: 048
     Dates: start: 201907, end: 201908
  5. CUPRIMINE [Suspect]
     Active Substance: PENICILLAMINE
     Indication: HEPATO-LENTICULAR DEGENERATION
     Route: 048
     Dates: start: 2017

REACTIONS (11)
  - Hepato-lenticular degeneration [Not Recovered/Not Resolved]
  - Bipolar I disorder [Unknown]
  - Product availability issue [Unknown]
  - Pain [Unknown]
  - Blood copper decreased [Unknown]
  - Liver disorder [Unknown]
  - Inability to afford medication [Unknown]
  - Malaise [Not Recovered/Not Resolved]
  - Therapy cessation [Unknown]
  - Intentional product use issue [Unknown]
  - Condition aggravated [Not Recovered/Not Resolved]

NARRATIVE: CASE EVENT DATE: 2019
